FAERS Safety Report 5726953-7 (Version None)
Quarter: 2008Q2

REPORT INFORMATION
  Report Type: 
  Country: None (occurrence: None)
  Receive Date: 20080502
  Receipt Date: 20080423
  Transmission Date: 20081010
  Serious: Yes (Congenital Anomaly, Other)
  Sender: FDA-Public Use
  Company Number: GB-ABBOTT-05P-167-0292141-00

PATIENT
  Sex: Male
  Weight: 2.902 kg

DRUGS (1)
  1. VALPROIC ACID [Suspect]
     Indication: DRUG EXPOSURE DURING PREGNANCY
     Route: 064

REACTIONS (36)
  - ANTERIOR CHAMBER CLEAVAGE SYNDROME [None]
  - ATRIAL SEPTAL DEFECT [None]
  - BREAST HYPOPLASIA [None]
  - CATARACT [None]
  - CLEFT PALATE [None]
  - CONGENITAL FLAT FEET [None]
  - CONGENITAL HAND MALFORMATION [None]
  - CONGENITAL HEART VALVE DISORDER [None]
  - CONGENITAL JAW MALFORMATION [None]
  - CONGENITAL MUSCULOSKELETAL ANOMALY [None]
  - CONGENITAL NOSE MALFORMATION [None]
  - CONGENITAL VISUAL ACUITY REDUCED [None]
  - DEFORMITY THORAX [None]
  - DRUG EXPOSURE DURING PREGNANCY [None]
  - DYSMORPHISM [None]
  - FAILURE TO THRIVE [None]
  - FEEDING DISORDER NEONATAL [None]
  - FOETAL ANTICONVULSANT SYNDROME [None]
  - FOOT DEFORMITY [None]
  - GASTROOESOPHAGEAL REFLUX DISEASE [None]
  - HEART DISEASE CONGENITAL [None]
  - HYPERTELORISM OF ORBIT [None]
  - HYPOPARATHYROIDISM [None]
  - HYPOSPADIAS [None]
  - NEURODEVELOPMENTAL DISORDER [None]
  - OTITIS MEDIA [None]
  - PLAGIOCEPHALY [None]
  - PSYCHOMOTOR SKILLS IMPAIRED [None]
  - PULMONARY OEDEMA [None]
  - PULMONARY VALVE STENOSIS CONGENITAL [None]
  - RESPIRATORY DISORDER NEONATAL [None]
  - SCOLIOSIS [None]
  - SKIN DISORDER [None]
  - SPEECH DISORDER DEVELOPMENTAL [None]
  - SYNDACTYLY [None]
  - UPPER LIMB DEFORMITY [None]
